FAERS Safety Report 22640087 (Version 1)
Quarter: 2023Q2

REPORT INFORMATION
  Report Type: Spontaneous
  Country: JP (occurrence: JP)
  Receive Date: 20230626
  Receipt Date: 20230626
  Transmission Date: 20230721
  Serious: Yes (Other)
  Sender: FDA-Public Use
  Company Number: JP-002147023-NVSC2023JP142698

PATIENT
  Age: 13 Year
  Sex: Male

DRUGS (4)
  1. MIDAZOLAM [Suspect]
     Active Substance: MIDAZOLAM
     Indication: Sedative therapy
     Dosage: UNK
     Route: 065
     Dates: start: 2018
  2. PROPOFOL [Suspect]
     Active Substance: PROPOFOL
     Indication: Sedative therapy
     Dosage: UNK
     Route: 065
     Dates: start: 2018
  3. DEXMEDETOMIDINE [Suspect]
     Active Substance: DEXMEDETOMIDINE
     Indication: Sedative therapy
     Dosage: UNK
     Route: 065
     Dates: start: 2018
  4. KETAMINE [Suspect]
     Active Substance: KETAMINE
     Indication: Sedative therapy
     Dosage: UNK
     Route: 065
     Dates: start: 2018

REACTIONS (2)
  - Cardio-respiratory arrest [Unknown]
  - Respiratory failure [Unknown]
